FAERS Safety Report 23217764 (Version 1)
Quarter: 2023Q4

REPORT INFORMATION
  Report Type: Report from Study
  Country: IE (occurrence: IE)
  Receive Date: 20231122
  Receipt Date: 20231122
  Transmission Date: 20240110
  Serious: Yes (Hospitalization)
  Sender: FDA-Public Use
  Company Number: IE-AstraZeneca-2023A262153

PATIENT
  Age: 11 Month
  Sex: Female

DRUGS (9)
  1. SYNAGIS [Suspect]
     Active Substance: PALIVIZUMAB
     Indication: Bulbar palsy
     Dosage: NUMBER OF DOSES REQUIRED 6,?15 MG/KG EVERY FOUR WEEKS
     Route: 030
     Dates: start: 20231017
  2. SYNAGIS [Suspect]
     Active Substance: PALIVIZUMAB
     Indication: Gastrostomy
  3. SYNAGIS [Suspect]
     Active Substance: PALIVIZUMAB
     Indication: Hypertonia
  4. SYNAGIS [Suspect]
     Active Substance: PALIVIZUMAB
     Indication: Hyperreflexia
  5. CLONAZEPAM [Concomitant]
     Active Substance: CLONAZEPAM
     Indication: Product used for unknown indication
  6. GLYCOPYRRONIUM [Concomitant]
     Active Substance: GLYCOPYRRONIUM
     Indication: Product used for unknown indication
  7. OMEPRAZOLE [Concomitant]
     Active Substance: OMEPRAZOLE
     Indication: Product used for unknown indication
  8. BACLOFEN [Concomitant]
     Active Substance: BACLOFEN
     Indication: Product used for unknown indication
  9. LEVETIRACETAM [Concomitant]
     Active Substance: LEVETIRACETAM
     Indication: Product used for unknown indication

REACTIONS (2)
  - Respiratory syncytial virus infection [Unknown]
  - Pyrexia [Unknown]
